FAERS Safety Report 5059081-7 (Version None)
Quarter: 2006Q3

REPORT INFORMATION
  Report Type: 
  Country: None (occurrence: None)
  Receive Date: 20060718
  Receipt Date: 20060630
  Transmission Date: 20061208
  Serious: Yes (Other)
  Sender: FDA-Public Use
  Company Number: 06071799

PATIENT
  Age: 40 Year
  Sex: Female

DRUGS (1)
  1. OVIDE [Suspect]
     Indication: LICE INFESTATION
     Dosage: ONCE TOPICAL
     Route: 061
     Dates: start: 20060506, end: 20060506

REACTIONS (8)
  - ABDOMINAL PAIN [None]
  - DIARRHOEA [None]
  - DISTURBANCE IN ATTENTION [None]
  - EPISTAXIS [None]
  - HEART RATE INCREASED [None]
  - MUSCLE SPASMS [None]
  - RASH [None]
  - VOMITING [None]
